FAERS Safety Report 5457168-8 (Version None)
Quarter: 2007Q3

REPORT INFORMATION
  Report Type: 
  Country: None (occurrence: None)
  Receive Date: 20070918
  Receipt Date: 20061229
  Transmission Date: 20080115
  Serious: No
  Sender: FDA-Public Use
  Company Number: US-ASTRAZENECA-2006UW28692

PATIENT
  Age: 47 Year
  Sex: Female
  Weight: 56.2 kg

DRUGS (4)
  1. SEROQUEL [Suspect]
     Indication: INSOMNIA
     Route: 048
     Dates: start: 20040101
  2. PROZAC [Concomitant]
  3. KLONOPIN [Concomitant]
  4. AMBIEN [Concomitant]

REACTIONS (4)
  - DRY EYE [None]
  - DRY MOUTH [None]
  - EAR DISORDER [None]
  - EAR INFECTION [None]
